FAERS Safety Report 12068185 (Version 1)
Quarter: 2016Q1

REPORT INFORMATION
  Report Type: Spontaneous
  Country: US (occurrence: US)
  Receive Date: 20160211
  Receipt Date: 20160211
  Transmission Date: 20160526
  Serious: No
  Sender: FDA-Public Use
  Company Number: US-SMITH AND NEPHEW, INC-2015SMT00419

PATIENT
  Age: 69 Year
  Sex: Female
  Weight: 124.72 kg

DRUGS (18)
  1. LANTUS [Concomitant]
     Active Substance: INSULIN GLARGINE
     Dosage: 10 U, 1X/DAY
  2. GLYBURIDE. [Concomitant]
     Active Substance: GLYBURIDE
     Dosage: 5 MG, 1X/DAY
  3. LEVOTHYROXINE. [Concomitant]
     Active Substance: LEVOTHYROXINE
     Dosage: 50 ?G, 1X/DAY
  4. HYDRALAZINE [Concomitant]
     Active Substance: HYDRALAZINE HYDROCHLORIDE
     Dosage: 25 MG, 3X/DAY
  5. HYDROCODONE [Concomitant]
     Active Substance: HYDROCODONE
     Dosage: UNK, AS NEEDED
  6. LATANOPROST SOLUTION [Concomitant]
     Dosage: 1 DOSAGE UNITS, 1X/DAY
  7. PANTOPRAZOLE E [Concomitant]
     Dosage: 40 MG, 1X/DAY
  8. FUROSEMIDE. [Concomitant]
     Active Substance: FUROSEMIDE
     Dosage: 120 MG, 1X/DAY
  9. REGRANEX [Suspect]
     Active Substance: BECAPLERMIN
     Indication: SKIN ULCER
     Dosage: UNK
     Route: 061
     Dates: start: 20150917, end: 20151015
  10. ISOSORBIDE MONO E [Concomitant]
     Dosage: 30 MG, 1X/DAY
  11. GABAPENTIN. [Concomitant]
     Active Substance: GABAPENTIN
     Dosage: 600 MG, 3X/DAY
  12. ASACOL HD [Concomitant]
     Active Substance: MESALAMINE
     Dosage: 800 MG, 3X/DAY
  13. CLOPIDOGREL [Concomitant]
     Active Substance: CLOPIDOGREL BISULFATE
     Dosage: 75 MG, 1X/DAY
  14. RANITIDINE [Concomitant]
     Active Substance: RANITIDINE\RANITIDINE HYDROCHLORIDE
     Dosage: 300 MG, 1X/DAY
  15. DORZOL/TIMOL SOLUTION [Concomitant]
     Dosage: 1 GTT, 2X/DAY
  16. PREDNISONE. [Concomitant]
     Active Substance: PREDNISONE
     Indication: SWELLING
     Dosage: 20 MG, AS NEEDED
  17. LOSARTAN. [Concomitant]
     Active Substance: LOSARTAN
     Dosage: 25 MG, 1X/DAY
  18. NITROGLYCERIN. [Concomitant]
     Active Substance: NITROGLYCERIN
     Dosage: UNK, AS NEEDED

REACTIONS (3)
  - Application site infection [Unknown]
  - Skin mass [Recovering/Resolving]
  - Application site discharge [Unknown]

NARRATIVE: CASE EVENT DATE: 2015
